FAERS Safety Report 8017238-7 (Version None)
Quarter: 2012Q1

REPORT INFORMATION
  Report Type: 
  Country: None (occurrence: None)
  Receive Date: 20120102
  Receipt Date: 20111231
  Transmission Date: 20120608
  Serious: Yes (Death, Hospitalization)
  Sender: FDA-Public Use
  Company Number: PHHO2011CN020932

PATIENT
  Sex: Female
  Weight: 51 kg

DRUGS (2)
  1. TASIGNA [Suspect]
     Indication: GASTROINTESTINAL STROMAL TUMOUR
     Dosage: 400 MG, QD
     Route: 048
     Dates: start: 20091129, end: 20100316
  2. IMATINIB MESYLATE [Suspect]
     Indication: GASTROINTESTINAL STROMAL TUMOUR
     Dosage: UNK
     Route: 048
     Dates: start: 20100320, end: 20111123

REACTIONS (5)
  - NEOPLASM PROGRESSION [None]
  - TUMOUR HAEMORRHAGE [None]
  - NEOPLASM MALIGNANT [None]
  - ANAEMIA [None]
  - ASCITES [None]
